FAERS Safety Report 16331817 (Version 1)
Quarter: 2019Q2

REPORT INFORMATION
  Report Type: Spontaneous
  Country: HR (occurrence: HR)
  Receive Date: 20190520
  Receipt Date: 20190520
  Transmission Date: 20190711
  Serious: Yes (Hospitalization)
  Sender: FDA-Public Use
  Company Number: HR-JUBILANT CADISTA PHARMACEUTICALS-2019JUB00183

PATIENT
  Age: 27 Year
  Sex: Male

DRUGS (5)
  1. METHYLPREDNISOLONE. [Suspect]
     Active Substance: METHYLPREDNISOLONE
     Dosage: ^HIGH DOSE PULSE^
     Route: 065
     Dates: start: 201105, end: 2011
  2. METHYLPREDNISOLONE. [Suspect]
     Active Substance: METHYLPREDNISOLONE
     Dosage: 1000 MG, OVER 1 HOUR, 1X/DAY
     Route: 042
     Dates: start: 201311, end: 2013
  3. METHYLPREDNISOLONE. [Suspect]
     Active Substance: METHYLPREDNISOLONE
     Dosage: ^HIGH DOSE PULSE^
     Route: 065
     Dates: start: 201202, end: 2012
  4. METHYLPREDNISOLONE. [Suspect]
     Active Substance: METHYLPREDNISOLONE
     Indication: RELAPSING-REMITTING MULTIPLE SCLEROSIS
     Dosage: ^HIGH DOSE PULSE^
     Route: 065
     Dates: start: 201102, end: 2011
  5. METHYLPREDNISOLONE. [Suspect]
     Active Substance: METHYLPREDNISOLONE
     Dosage: 1000 MG, OVER 1 HOUR, 1X/DAY
     Route: 042
     Dates: start: 201304, end: 2013

REACTIONS (1)
  - Atrial fibrillation [Recovered/Resolved]

NARRATIVE: CASE EVENT DATE: 201304
